FAERS Safety Report 22199759 (Version 1)
Quarter: 2023Q2

REPORT INFORMATION
  Report Type: Spontaneous
  Country: US (occurrence: US)
  Receive Date: 20230412
  Receipt Date: 20230412
  Transmission Date: 20230722
  Serious: Yes (Life-Threatening, Hospitalization, Other)
  Sender: FDA-Public Use
  Company Number: US-drreddys-SPO/USA/23/0163368

PATIENT
  Age: 59 Year
  Sex: Male

DRUGS (8)
  1. HEPARIN SODIUM [Suspect]
     Active Substance: HEPARIN SODIUM
     Indication: Cardiac ventricular thrombosis
     Route: 042
  2. HEPARIN SODIUM [Suspect]
     Active Substance: HEPARIN SODIUM
     Indication: Atrial fibrillation
  3. ASPIRIN [Suspect]
     Active Substance: ASPIRIN
     Indication: Atrial fibrillation
  4. ASPIRIN [Suspect]
     Active Substance: ASPIRIN
     Indication: Cardiac ventricular thrombosis
  5. TICAGRELOR [Suspect]
     Active Substance: TICAGRELOR
     Indication: Atrial fibrillation
  6. TICAGRELOR [Suspect]
     Active Substance: TICAGRELOR
     Indication: Cardiac ventricular thrombosis
  7. RIVAROXABAN [Suspect]
     Active Substance: RIVAROXABAN
     Indication: Cardiac ventricular thrombosis
  8. RIVAROXABAN [Suspect]
     Active Substance: RIVAROXABAN
     Indication: Atrial fibrillation

REACTIONS (2)
  - Intestinal haematoma [Recovered/Resolved]
  - Product use in unapproved indication [Unknown]
